FAERS Safety Report 14687509 (Version 3)
Quarter: 2018Q4

REPORT INFORMATION
  Report Type: Spontaneous
  Country: FR (occurrence: FR)
  Receive Date: 20180328
  Receipt Date: 20181012
  Transmission Date: 20190204
  Serious: Yes (Death, Hospitalization)
  Sender: FDA-Public Use
  Company Number: FR-009507513-1107FRA00138

PATIENT
  Age: 36 Year
  Sex: Male

DRUGS (13)
  1. CASPOFUNGIN ACETATE. [Suspect]
     Active Substance: CASPOFUNGIN ACETATE
     Indication: ANTIFUNGAL TREATMENT
     Dosage: 50 MG, DAILY
     Dates: start: 2009
  2. SOLU-MEDROL [Concomitant]
     Active Substance: METHYLPREDNISOLONE SODIUM SUCCINATE
     Indication: IMMUNOSUPPRESSANT DRUG THERAPY
     Dosage: 10 MG/KG, UNK (BODY WEIGHT ON THE DAY OF TRANSPLANTATION)
     Dates: start: 2009
  3. SOLU-MEDROL [Concomitant]
     Active Substance: METHYLPREDNISOLONE SODIUM SUCCINATE
     Dosage: 120 MG, TID (THREE DOSES PER DAY)
     Dates: start: 2009
  4. CYCLOSPORINE. [Concomitant]
     Active Substance: CYCLOSPORINE
     Indication: IMMUNOSUPPRESSANT DRUG THERAPY
     Dosage: UNK (ADJUSTED ACCORDING TO DIALYSIS PARAMETERS TO REACH THERAPEUTIC BLOOD LEVELS (300 TO 350 NG/ML))
     Route: 065
     Dates: start: 2009
  5. VORICONAZOLE. [Suspect]
     Active Substance: VORICONAZOLE
     Indication: ANTIFUNGAL TREATMENT
     Dosage: 6 MG/KG EVERY 12 H AS A LOADING DOSE
     Route: 042
     Dates: start: 2009, end: 2009
  6. VANCOMYCIN [Concomitant]
     Active Substance: VANCOMYCIN
     Indication: ANTIBIOTIC THERAPY
     Dosage: UNK
     Dates: start: 2009
  7. FLUCONAZOLE. [Concomitant]
     Active Substance: FLUCONAZOLE
     Indication: CANDIDA INFECTION
     Dosage: 200 MG, UNK (AFTER EACH DIALYSIS)
     Route: 042
     Dates: start: 200906
  8. CASPOFUNGIN ACETATE. [Suspect]
     Active Substance: CASPOFUNGIN ACETATE
     Indication: SYSTEMIC MYCOSIS
     Dosage: 70 MG/DAY AS A LOADING DOSE
     Dates: start: 2009, end: 2009
  9. VORICONAZOLE. [Suspect]
     Active Substance: VORICONAZOLE
     Indication: FUNGAL INFECTION
     Dosage: TWO 4-MG/KG DOSES A DAY
     Route: 042
     Dates: start: 2009
  10. TOBRAMYCIN. [Concomitant]
     Active Substance: TOBRAMYCIN
     Indication: ANTIBIOTIC THERAPY
     Dosage: UNK
     Dates: start: 2009
  11. TAZOBACTAM [Concomitant]
     Active Substance: TAZOBACTAM
     Indication: ANTIBIOTIC THERAPY
     Dosage: UNK
     Dates: start: 2009
  12. PIPERACILLIN. [Concomitant]
     Active Substance: PIPERACILLIN SODIUM
     Indication: ANTIBIOTIC THERAPY
     Dosage: UNK
     Dates: start: 2009
  13. BASILIXIMAB [Concomitant]
     Active Substance: BASILIXIMAB
     Indication: IMMUNOSUPPRESSANT DRUG THERAPY
     Dosage: 20 MG IV ON THE DAY OF TRANSPLANTATION AND ON DAY 4
     Route: 042
     Dates: start: 2009

REACTIONS (1)
  - Drug ineffective [Fatal]

NARRATIVE: CASE EVENT DATE: 2009
